FAERS Safety Report 26100407 (Version 1)
Quarter: 2025Q4

REPORT INFORMATION
  Report Type: Spontaneous
  Country: PK (occurrence: PK)
  Receive Date: 20251128
  Receipt Date: 20251128
  Transmission Date: 20260117
  Serious: Yes (Death, Other)
  Sender: ALKEM
  Company Number: PK-ALKEM LABORATORIES LIMITED-PK-ALKEM-2025-12823

PATIENT
  Age: 21 Year
  Sex: Male

DRUGS (1)
  1. LIDOCAINE [Suspect]
     Active Substance: LIDOCAINE
     Indication: Pain management
     Dosage: 800 MILLIGRAM
     Route: 061

REACTIONS (6)
  - Local anaesthetic systemic toxicity [Fatal]
  - Respiratory distress [Fatal]
  - Seizure [Fatal]
  - Overdose [Fatal]
  - Hypotension [Fatal]
  - Bradycardia [Fatal]
